FAERS Safety Report 5926034-3 (Version None)
Quarter: 2008Q4

REPORT INFORMATION
  Report Type: 
  Country: None (occurrence: None)
  Receive Date: 20080924
  Receipt Date: 20080731
  Transmission Date: 20090506
  Serious: No
  Sender: FDA-Public Use
  Company Number: US-WYE-H05337108

PATIENT
  Age: 72 Year
  Sex: Male
  Weight: 88.08 kg

DRUGS (6)
  1. TORISEL [Suspect]
     Indication: RENAL CELL CARCINOMA
     Dosage: 25 MG 1X PER 1 WK, INTRAVENOUS
     Route: 042
     Dates: start: 20080515, end: 20080723
  2. ATIVAN [Concomitant]
  3. PERCOCET [Concomitant]
  4. HYDROCHLORIDE/OXYCODONE TEREPHTHALATE/PARACETAMOL) [Concomitant]
  5. WARFARIN SODIUM [Concomitant]
  6. BENADRYL [Concomitant]

REACTIONS (6)
  - HYPERSENSITIVITY [None]
  - OPEN WOUND [None]
  - RASH [None]
  - RASH PAPULAR [None]
  - RASH PRURITIC [None]
  - SKIN EXFOLIATION [None]
